FAERS Safety Report 5905479-1 (Version None)
Quarter: 2008Q4

REPORT INFORMATION
  Report Type: 
  Country: None (occurrence: None)
  Receive Date: 20081001
  Receipt Date: 20081001
  Transmission Date: 20090506
  Serious: Yes (Hospitalization)
  Sender: FDA-Public Use
  Company Number: None

PATIENT
  Sex: Male
  Weight: 80 kg

DRUGS (4)
  1. CASODEX [Suspect]
     Dosage: 6550 MG
  2. LEUPROLIDE ACETATE [Suspect]
     Dosage: 21.6 MG
  3. ASPIRIN [Concomitant]
  4. PLAVIX [Concomitant]

REACTIONS (3)
  - ANAEMIA [None]
  - GASTROINTESTINAL ANGIODYSPLASIA [None]
  - OCCULT BLOOD POSITIVE [None]
